FAERS Safety Report 7692695-4 (Version None)
Quarter: 2011Q3

REPORT INFORMATION
  Report Type: 
  Country: None (occurrence: None)
  Receive Date: 20110819
  Receipt Date: 20110816
  Transmission Date: 20111222
  Serious: Yes (Other)
  Sender: FDA-Public Use
  Company Number: US-PFIZER INC-2011188547

PATIENT
  Sex: Male
  Weight: 81.633 kg

DRUGS (2)
  1. VIAGRA [Suspect]
     Dosage: TWO TABLETS OF 50 MG
     Route: 048
     Dates: start: 20110815
  2. VIAGRA [Suspect]
     Indication: SEXUAL DYSFUNCTION
     Dosage: 50 MG, UNK
     Route: 048
     Dates: start: 20110701, end: 20110101

REACTIONS (1)
  - ERECTION INCREASED [None]
